FAERS Safety Report 23383463 (Version 1)
Quarter: 2024Q1

REPORT INFORMATION
  Report Type: Spontaneous
  Country: US (occurrence: None)
  Receive Date: 20240109
  Receipt Date: 20240109
  Transmission Date: 20240410
  Serious: Yes (Hospitalization)
  Sender: FDA-Public Use
  Company Number: None

PATIENT
  Age: 50 Year
  Sex: Female
  Weight: 70 kg

DRUGS (1)
  1. PAZOPANIB [Suspect]
     Active Substance: PAZOPANIB
     Dates: end: 20231227

REACTIONS (4)
  - Blood pressure increased [None]
  - Back pain [None]
  - Musculoskeletal pain [None]
  - Muscular weakness [None]

NARRATIVE: CASE EVENT DATE: 20240102
